FAERS Safety Report 17480546 (Version 17)
Quarter: 2021Q4

REPORT INFORMATION
  Report Type: Report from Study
  Country: US (occurrence: US)
  Receive Date: 20200301
  Receipt Date: 20211229
  Transmission Date: 20220304
  Serious: Yes (Other)
  Sender: FDA-Public Use
  Company Number: US-SHIRE-US202007886

PATIENT
  Sex: Female
  Weight: 49 kg

DRUGS (36)
  1. HUMAN IMMUNOGLOBULIN G [Suspect]
     Active Substance: HUMAN IMMUNOGLOBULIN G
     Indication: Immunodeficiency common variable
     Dosage: 6 GRAM, 1X/WEEK
     Route: 058
     Dates: start: 20190124
  2. HUMAN IMMUNOGLOBULIN G [Suspect]
     Active Substance: HUMAN IMMUNOGLOBULIN G
     Dosage: 6 GRAM, 1X/WEEK
     Route: 058
     Dates: start: 20181109
  3. HUMAN IMMUNOGLOBULIN G [Suspect]
     Active Substance: HUMAN IMMUNOGLOBULIN G
     Dosage: 8 GRAM, 1X/WEEK
     Route: 065
  4. HUMAN IMMUNOGLOBULIN G [Suspect]
     Active Substance: HUMAN IMMUNOGLOBULIN G
     Dosage: 4 GRAM
     Route: 065
  5. HUMAN IMMUNOGLOBULIN G [Suspect]
     Active Substance: HUMAN IMMUNOGLOBULIN G
     Dosage: 2 GRAM
     Route: 065
     Dates: start: 20181109
  6. HUMAN IMMUNOGLOBULIN G [Suspect]
     Active Substance: HUMAN IMMUNOGLOBULIN G
     Dosage: 6 GRAM, 1X/WEEK
     Route: 058
     Dates: start: 20190130
  7. HUMAN IMMUNOGLOBULIN G [Suspect]
     Active Substance: HUMAN IMMUNOGLOBULIN G
     Dosage: 6 GRAM, 1X/WEEK
     Route: 065
     Dates: start: 202003
  8. ZOFRAN [Concomitant]
     Active Substance: ONDANSETRON HYDROCHLORIDE
  9. ACETAMINOPHEN [Concomitant]
     Active Substance: ACETAMINOPHEN
  10. DIPHENHYDRAMINE [Concomitant]
     Active Substance: DIPHENHYDRAMINE
  11. EPINEPHRINE [Concomitant]
     Active Substance: EPINEPHRINE
  12. LMX4 [Concomitant]
     Active Substance: LIDOCAINE
  13. LAMICTAL [Concomitant]
     Active Substance: LAMOTRIGINE
  14. MOBIC [Concomitant]
     Active Substance: MELOXICAM
  15. OMEPRAZOLE [Concomitant]
     Active Substance: OMEPRAZOLE
  16. MINERALS\VITAMINS [Concomitant]
     Active Substance: MINERALS\VITAMINS
  17. HYDROXYZINE [Concomitant]
     Active Substance: HYDROXYZINE HYDROCHLORIDE
  18. MAGNESIUM [Concomitant]
     Active Substance: MAGNESIUM
  19. DIETARY SUPPLEMENT\PROBIOTICS [Concomitant]
     Active Substance: DIETARY SUPPLEMENT\PROBIOTICS
  20. LUTEIN-ZEAXANTHIN [Concomitant]
  21. KLONOPIN [Concomitant]
     Active Substance: CLONAZEPAM
  22. FLUVOXAMINE [Concomitant]
     Active Substance: FLUVOXAMINE
  23. ZANTAC [Concomitant]
     Active Substance: RANITIDINE HYDROCHLORIDE
  24. CALCIUM [Concomitant]
     Active Substance: CALCIUM
  25. ACETAMINOPHEN\HYDROCODONE [Concomitant]
     Active Substance: ACETAMINOPHEN\HYDROCODONE
  26. ATLANTIC SALMON OIL [Concomitant]
     Active Substance: ATLANTIC SALMON OIL
  27. VITAMINS [Concomitant]
     Active Substance: VITAMINS
  28. NORCO [Concomitant]
     Active Substance: ACETAMINOPHEN\HYDROCODONE BITARTRATE
  29. OCUVITE ADULT 50+ [ASCORBIC ACID;COPPER GLUCONATE;FISH OIL;TOCOPHEROL; [Concomitant]
  30. MAGNESIUM OXIDE [Concomitant]
     Active Substance: MAGNESIUM OXIDE
  31. HIZENTRA [Concomitant]
     Active Substance: HUMAN IMMUNOGLOBULIN G
  32. OXYBUTYNIN [Concomitant]
     Active Substance: OXYBUTYNIN
  33. FAMOTIDINE [Concomitant]
     Active Substance: FAMOTIDINE
  34. OXYBUTYNIN CHLORIDE [Concomitant]
     Active Substance: OXYBUTYNIN CHLORIDE
  35. CEQUA [Concomitant]
     Active Substance: CYCLOSPORINE
  36. URIBEL [Concomitant]
     Active Substance: HYOSCYAMINE SULFATE\METHENAMINE\METHYLENE BLUE\PHENYL SALICYLATE\SODIUM PHOSPHATE, MONOBASIC, MONOHY

REACTIONS (31)
  - Polymyalgia rheumatica [Unknown]
  - Cystitis [Unknown]
  - Sepsis [Unknown]
  - Transient ischaemic attack [Unknown]
  - Hypertonic bladder [Unknown]
  - Illness [Unknown]
  - Feeling abnormal [Unknown]
  - Gastroenteritis viral [Recovered/Resolved]
  - Paronychia [Unknown]
  - Skin atrophy [Unknown]
  - Aphthous ulcer [Unknown]
  - Skin wrinkling [Unknown]
  - Impaired healing [Unknown]
  - Infusion site pain [Unknown]
  - Infusion site erythema [Unknown]
  - Infusion site pruritus [Unknown]
  - Pain [Unknown]
  - Swelling [Not Recovered/Not Resolved]
  - White blood cell count decreased [Unknown]
  - Oral fungal infection [Unknown]
  - Oral herpes [Unknown]
  - Neck pain [Unknown]
  - Headache [Unknown]
  - Infusion site bruising [Unknown]
  - Infusion site swelling [Unknown]
  - Nail infection [Unknown]
  - Nasopharyngitis [Unknown]
  - Localised infection [Unknown]
  - Multiple allergies [Unknown]
  - Infusion site pain [Unknown]
  - Product dose omission issue [Unknown]
